FAERS Safety Report 17139839 (Version 2)
Quarter: 2020Q1

REPORT INFORMATION
  Report Type: Spontaneous
  Country: AT (occurrence: AT)
  Receive Date: 20191211
  Receipt Date: 20200106
  Transmission Date: 20200409
  Serious: Yes (Life-Threatening)
  Sender: FDA-Public Use
  Company Number: AT-ACCORD-164493

PATIENT
  Age: 68 Year
  Sex: Male

DRUGS (1)
  1. GEMCITABIN ACCORD [Suspect]
     Active Substance: GEMCITABINE\GEMCITABINE HYDROCHLORIDE
     Indication: PANCREATIC CARCINOMA
     Dates: start: 20190719, end: 20191107

REACTIONS (3)
  - Pneumocystis jirovecii infection [Not Recovered/Not Resolved]
  - Pneumocystis jirovecii pneumonia [Not Recovered/Not Resolved]
  - Acute respiratory distress syndrome [Not Recovered/Not Resolved]

NARRATIVE: CASE EVENT DATE: 20191107
